FAERS Safety Report 5276105-2 (Version None)
Quarter: 2007Q1

REPORT INFORMATION
  Report Type: 
  Country: None (occurrence: None)
  Receive Date: 20070326
  Receipt Date: 20070314
  Transmission Date: 20070707
  Serious: Yes (Other)
  Sender: FDA-Public Use
  Company Number: HQWYE728108JAN07

PATIENT
  Sex: Male
  Weight: 85.81 kg

DRUGS (1)
  1. EFFEXOR XR [Suspect]
     Indication: DEPRESSION
     Route: 048
     Dates: start: 20030101, end: 20070101

REACTIONS (10)
  - BAND NEUTROPHIL COUNT INCREASED [None]
  - DRUG WITHDRAWAL SYNDROME [None]
  - HAEMATURIA [None]
  - HEPATIC FAILURE [None]
  - HEPATOMEGALY [None]
  - LYMPHOCYTE COUNT DECREASED [None]
  - MONOCYTE COUNT DECREASED [None]
  - NEUTROPHIL COUNT INCREASED [None]
  - PARAESTHESIA [None]
  - SPLENOMEGALY [None]
